FAERS Safety Report 6398812-0 (Version None)
Quarter: 2009Q4

REPORT INFORMATION
  Report Type: 
  Country: None (occurrence: None)
  Receive Date: 20091013
  Receipt Date: 20091001
  Transmission Date: 20100525
  Serious: Yes (Hospitalization, Other)
  Sender: FDA-Public Use
  Company Number: JP-SANOFI-SYNTHELABO-F01200900373

PATIENT
  Sex: Female
  Weight: 33 kg

DRUGS (13)
  1. DASEN [Concomitant]
     Indication: PHARYNGITIS
     Route: 048
     Dates: start: 20081222
  2. LOXONIN [Concomitant]
     Indication: PHARYNGITIS
     Dosage: 60 MG TID/PRN
     Route: 048
     Dates: start: 20081222
  3. FLUMARIN [Concomitant]
     Indication: PNEUMONIA
     Route: 042
     Dates: start: 20090127, end: 20090204
  4. ALEVIATIN [Concomitant]
     Dosage: 250 MG
     Route: 042
     Dates: start: 20090127, end: 20090131
  5. PENTCILLIN [Concomitant]
     Indication: PNEUMONIA
     Route: 042
     Dates: start: 20090108, end: 20090121
  6. UNASYN [Concomitant]
     Indication: PHARYNGITIS
     Route: 042
     Dates: start: 20081220, end: 20081231
  7. SYMMETREL [Concomitant]
     Route: 048
     Dates: start: 20081205
  8. EXCEGRAN [Concomitant]
     Route: 048
     Dates: start: 20081121
  9. GASTER [Concomitant]
     Indication: GASTRIC ULCER
     Route: 048
     Dates: start: 20081121
  10. GASTER [Concomitant]
     Route: 042
     Dates: start: 20090127, end: 20090131
  11. AMLODIPINE [Concomitant]
     Indication: HYPERTENSION
     Dosage: 5 MG
     Route: 048
     Dates: start: 20081122
  12. CLOPIDOGREL [Suspect]
     Indication: LACUNAR INFARCTION
     Dosage: 50 MG
     Route: 048
     Dates: start: 20081205, end: 20090117
  13. CLOPIDOGREL [Suspect]
     Dosage: 50 MG
     Route: 048
     Dates: start: 20090201

REACTIONS (4)
  - ANAEMIA [None]
  - DIABETES MELLITUS [None]
  - PNEUMONIA [None]
  - STAPHYLOCOCCAL INFECTION [None]
